FAERS Safety Report 7291125-4 (Version None)
Quarter: 2011Q1

REPORT INFORMATION
  Report Type: 
  Country: None (occurrence: None)
  Receive Date: 20110214
  Receipt Date: 20110211
  Transmission Date: 20110831
  Serious: Yes (Other)
  Sender: FDA-Public Use
  Company Number: US-PFIZER INC-2011031497

PATIENT
  Sex: Female
  Weight: 68 kg

DRUGS (4)
  1. CALCIUM W/MAGNESIUM [Concomitant]
     Dosage: UNK
  2. NORVASC [Suspect]
     Indication: HYPERTENSION
     Dosage: 5 MG, 1X/DAY
     Route: 048
     Dates: start: 20100101
  3. VITAMIN D [Concomitant]
     Dosage: 2000 IU, UNK
     Route: 048
  4. VITAMIN B COMPLEX [Concomitant]
     Dosage: 100 MG, UNK
     Route: 048

REACTIONS (5)
  - VISION BLURRED [None]
  - DRY SKIN [None]
  - CORNEAL DISORDER [None]
  - VISUAL ACUITY REDUCED [None]
  - DRY EYE [None]
